FAERS Safety Report 7649884-4 (Version None)
Quarter: 2011Q3

REPORT INFORMATION
  Report Type: 
  Country: None (occurrence: None)
  Receive Date: 20110802
  Receipt Date: 20110720
  Transmission Date: 20111222
  Serious: Yes (Hospitalization)
  Sender: FDA-Public Use
  Company Number: JP-ELI_LILLY_AND_COMPANY-JP201010000304

PATIENT
  Sex: Male
  Weight: 53 kg

DRUGS (7)
  1. MAGMITT [Concomitant]
     Dosage: 9 D/F, DAILY (1/D)
     Route: 048
  2. GEMZAR [Suspect]
     Indication: PANCREATIC CARCINOMA STAGE III
     Dosage: 1400 MG, OTHER
     Route: 042
     Dates: start: 20100329, end: 20100720
  3. LAC-B [Concomitant]
     Indication: POSTOPERATIVE CARE
     Dosage: 1 G, 3/D
     Route: 048
     Dates: start: 20100318
  4. MAGNESIUM SULFATE [Concomitant]
     Indication: POSTOPERATIVE CARE
     Dosage: 330 MG, 3/D
     Route: 048
     Dates: start: 20100318
  5. FAMOTIDINE [Concomitant]
     Indication: POSTOPERATIVE CARE
     Dosage: 20 MG, 2/D
     Route: 048
     Dates: start: 20100318
  6. PANCREAZE [Concomitant]
     Dosage: 27 MG, DAILY (1/D)
     Route: 048
  7. BERIZYM [Concomitant]
     Indication: POSTOPERATIVE CARE
     Dosage: 1 G, 3/D
     Dates: start: 20100318

REACTIONS (1)
  - HEPATITIS B [None]
